FAERS Safety Report 24794254 (Version 1)
Quarter: 2024Q4

REPORT INFORMATION
  Report Type: Spontaneous
  Country: US (occurrence: None)
  Receive Date: 20241230
  Receipt Date: 20241230
  Transmission Date: 20250115
  Serious: Yes (Other)
  Sender: Public
  Company Number: None

PATIENT
  Age: 45 Year
  Sex: Female
  Weight: 79.4 kg

DRUGS (1)
  1. NURTEC ODT [Suspect]
     Active Substance: RIMEGEPANT SULFATE
     Indication: Migraine
     Dosage: FREQUENCY : AS NEEDED;?
     Route: 048
     Dates: start: 20241214, end: 20241214

REACTIONS (6)
  - Cold sweat [None]
  - Nervousness [None]
  - Hyperhidrosis [None]
  - Feeling cold [None]
  - Pallor [None]
  - Vomiting [None]

NARRATIVE: CASE EVENT DATE: 20241214
